FAERS Safety Report 18352320 (Version 1)
Quarter: 2020Q4

REPORT INFORMATION
  Report Type: Spontaneous
  Country: US (occurrence: US)
  Receive Date: 20201006
  Receipt Date: 20201006
  Transmission Date: 20210114
  Serious: Yes (Hospitalization, Other)
  Sender: FDA-Public Use
  Company Number: US-PURDUE-USA-2020-0169122

PATIENT
  Age: 73 Year
  Sex: Male

DRUGS (2)
  1. BUPRENORPHINE. [Suspect]
     Active Substance: BUPRENORPHINE
     Indication: DRUG DEPENDENCE
     Dosage: 4 MG, DAILY (2MG + 2MG AFTER 2HOURS OF THE FIRST GIVEN DOSE)
     Route: 060
  2. BUPRENORPHINE. [Suspect]
     Active Substance: BUPRENORPHINE
     Indication: DRUG WITHDRAWAL SYNDROME

REACTIONS (6)
  - Toxicity to various agents [Recovered/Resolved]
  - Hypotension [Recovered/Resolved]
  - Bradycardia [Recovered/Resolved]
  - Somnolence [Recovered/Resolved]
  - Respiratory rate decreased [Recovered/Resolved]
  - Lethargy [Recovered/Resolved]
